FAERS Safety Report 6011677-1 (Version None)
Quarter: 2008Q4

REPORT INFORMATION
  Report Type: 
  Country: None (occurrence: None)
  Receive Date: 20081218
  Receipt Date: 19870108
  Transmission Date: 20090506
  Serious: Yes (Death, Life-Threatening)
  Sender: FDA-Public Use
  Company Number: AU-ROCHE-860150419001

PATIENT
  Age: 56 Year
  Sex: Male

DRUGS (4)
  1. INTERFERON ALFA-2A [Suspect]
     Indication: MALIGNANT MELANOMA
     Dosage: MAX DAILY DOSE REPORTED AS 6 MILLION UNITS
     Route: 058
  2. INTERFERON ALFA-2A [Suspect]
     Route: 058
  3. VINBLASTINE SULFATE [Suspect]
     Indication: MALIGNANT MELANOMA
     Route: 042
  4. VINBLASTINE SULFATE [Suspect]
     Route: 042

REACTIONS (2)
  - CEREBROVASCULAR ACCIDENT [None]
  - DISEASE PROGRESSION [None]
